FAERS Safety Report 13741843 (Version 1)
Quarter: 2017Q3

REPORT INFORMATION
  Report Type: Spontaneous
  Country: US (occurrence: US)
  Receive Date: 20170711
  Receipt Date: 20170711
  Transmission Date: 20171127
  Serious: No
  Sender: FDA-Public Use
  Company Number: US-PFIZER INC-2017254161

PATIENT
  Age: 59 Year
  Sex: Male
  Weight: 168 kg

DRUGS (3)
  1. GENOTROPIN [Suspect]
     Active Substance: SOMATROPIN
     Indication: HYPOPITUITARISM
     Dosage: 0.2 MG, DAILY
     Route: 058
     Dates: start: 20170607
  2. GENOTROPIN [Suspect]
     Active Substance: SOMATROPIN
     Indication: CEREBROVASCULAR ACCIDENT
     Dosage: UNK
  3. GENOTROPIN [Suspect]
     Active Substance: SOMATROPIN
     Indication: DIABETES MELLITUS

REACTIONS (3)
  - Incorrect dose administered [Unknown]
  - Wrong technique in product usage process [Unknown]
  - Oedema peripheral [Unknown]
